FAERS Safety Report 26004410 (Version 2)
Quarter: 2025Q4

REPORT INFORMATION
  Report Type: Report from Study
  Country: CA (occurrence: CA)
  Receive Date: 20251106
  Receipt Date: 20251120
  Transmission Date: 20260118
  Serious: Yes (Hospitalization, Other)
  Sender: CELLTRION
  Company Number: CA-CELLTRION INC.-2025CA039913

PATIENT

DRUGS (1)
  1. OMALIZUMAB [Suspect]
     Active Substance: OMALIZUMAB
     Indication: Chronic spontaneous urticaria
     Dosage: 300 MILLIGRAM
     Route: 058

REACTIONS (7)
  - Condition aggravated [Unknown]
  - Malaise [Unknown]
  - Amnesia [Unknown]
  - Blindness unilateral [Unknown]
  - Conjunctivitis [Unknown]
  - Haemorrhage [Unknown]
  - Pain [Unknown]
